FAERS Safety Report 4996417-7 (Version None)
Quarter: 2006Q2

REPORT INFORMATION
  Report Type: 
  Country: None (occurrence: None)
  Receive Date: 20060505
  Receipt Date: 20060424
  Transmission Date: 20061013
  Serious: Yes (Hospitalization, Other)
  Sender: FDA-Public Use
  Company Number: 2006046460

PATIENT
  Age: 86 Year
  Sex: Male

DRUGS (7)
  1. ALPRAZOLAM [Suspect]
     Indication: INSOMNIA
     Dosage: 2 MG (2 MG, 1 IN 1 D), ORAL
     Route: 048
     Dates: start: 20010101
  2. KEFLEX [Suspect]
     Indication: ILL-DEFINED DISORDER
     Dosage: 1 IN 6 HR
     Dates: start: 20060301
  3. ALL OTHER THERAPEUTIC PRODUCTS (ALL OTHER THERAPEUTIC PRODUCTS0 [Concomitant]
  4. ENALAPRIL MALEATE [Concomitant]
  5. KEFLEX [Concomitant]
  6. ASPIRIN [Concomitant]
  7. AMIODARONE HYDROCHLORIDE [Concomitant]

REACTIONS (12)
  - ARRHYTHMIA [None]
  - CARDIAC FAILURE [None]
  - DEPRESSION [None]
  - DIFFICULTY IN WALKING [None]
  - DIZZINESS [None]
  - DRUG EFFECT DECREASED [None]
  - HYPERTENSION [None]
  - HYPOTENSION [None]
  - INSOMNIA [None]
  - MEMORY IMPAIRMENT [None]
  - PHARMACEUTICAL PRODUCT COMPLAINT [None]
  - SYNCOPE [None]
